FAERS Safety Report 22199472 (Version 2)
Quarter: 2023Q2

REPORT INFORMATION
  Report Type: Spontaneous
  Country: US (occurrence: US)
  Receive Date: 20230412
  Receipt Date: 20230510
  Transmission Date: 20230721
  Serious: No
  Sender: FDA-Public Use
  Company Number: US-BoehringerIngelheim-2023-BI-230895

PATIENT
  Age: 63 Year
  Sex: Female

DRUGS (1)
  1. JARDIANCE [Suspect]
     Active Substance: EMPAGLIFLOZIN
     Indication: Product used for unknown indication
     Route: 048
     Dates: start: 20221117, end: 20230404

REACTIONS (2)
  - Blood glucose increased [Recovered/Resolved]
  - Diabetes mellitus [Unknown]

NARRATIVE: CASE EVENT DATE: 20221117
